FAERS Safety Report 7555336-2 (Version None)
Quarter: 2011Q2

REPORT INFORMATION
  Report Type: 
  Country: None (occurrence: None)
  Receive Date: 20110617
  Receipt Date: 20110606
  Transmission Date: 20111010
  Serious: Yes (Other)
  Sender: FDA-Public Use
  Company Number: PHHY2011US44505

PATIENT
  Sex: Male
  Weight: 63.5 kg

DRUGS (7)
  1. OMEPRAZOLE [Concomitant]
     Dosage: UNK
  2. CALCIUM CARBONATE [Concomitant]
     Dosage: UNK
  3. LISINOPRIL [Concomitant]
     Dosage: UNK
  4. DILANTIN [Concomitant]
     Dosage: UNK
  5. EXJADE [Suspect]
     Indication: MYELODYSPLASTIC SYNDROME
     Dosage: 2500 MG, DAILY
     Route: 048
     Dates: start: 20110101
  6. LORAZEPAM [Concomitant]
     Dosage: UNK
  7. GARLIC [Concomitant]
     Dosage: UNK

REACTIONS (2)
  - HAEMATOCHEZIA [None]
  - BOWEL MOVEMENT IRREGULARITY [None]
